FAERS Safety Report 7738548-4 (Version None)
Quarter: 2011Q3

REPORT INFORMATION
  Report Type: 
  Country: None (occurrence: None)
  Receive Date: 20110908
  Receipt Date: 20110830
  Transmission Date: 20111222
  Serious: Yes (Other)
  Sender: FDA-Public Use
  Company Number: ES-ASTRAZENECA-2011SE52093

PATIENT
  Age: 50 Year
  Sex: Male

DRUGS (1)
  1. VANDETANIB [Suspect]
     Dosage: UNKNOWN
     Route: 048
     Dates: start: 20110812

REACTIONS (1)
  - GAMMA-GLUTAMYLTRANSFERASE INCREASED [None]
